FAERS Safety Report 13117349 (Version 1)
Quarter: 2017Q1

REPORT INFORMATION
  Report Type: Spontaneous
  Country: US (occurrence: US)
  Receive Date: 20170116
  Receipt Date: 20170116
  Transmission Date: 20170428
  Serious: No
  Sender: FDA-Public Use
  Company Number: US-BAYER-2017-008445

PATIENT
  Age: 22 Year
  Sex: Female
  Weight: 81.64 kg

DRUGS (1)
  1. MIRALAX [Suspect]
     Active Substance: POLYETHYLENE GLYCOL 3350
     Indication: GASTROINTESTINAL DISORDER
     Dosage: UNK
     Route: 048
     Dates: start: 20161219, end: 201701

REACTIONS (2)
  - Product physical issue [Unknown]
  - Product solubility abnormal [None]

NARRATIVE: CASE EVENT DATE: 20161223
